FAERS Safety Report 7248446-0 (Version None)
Quarter: 2011Q1

REPORT INFORMATION
  Report Type: 
  Country: None (occurrence: None)
  Receive Date: 20110127
  Receipt Date: 20110120
  Transmission Date: 20110831
  Serious: Yes (Other)
  Sender: FDA-Public Use
  Company Number: US-ELI_LILLY_AND_COMPANY-US201101005408

PATIENT
  Sex: Male

DRUGS (10)
  1. HUMULIN N [Suspect]
     Dosage: UNK, AS NEEDED
     Dates: end: 20100101
  2. APIDRA [Concomitant]
     Indication: TYPE 1 DIABETES MELLITUS
     Dosage: UNK, AS NEEDED
  3. UNSPECIFIED HERBAL [Concomitant]
  4. CHROMIUM PICOLINATE [Concomitant]
  5. HUMULIN N [Suspect]
     Indication: TYPE 1 DIABETES MELLITUS
     Dosage: UNK, AS NEEDED
  6. HUMULIN R [Suspect]
     Indication: TYPE 1 DIABETES MELLITUS
     Dosage: UNK, AS NEEDED
  7. ILETIN [Suspect]
     Indication: TYPE 1 DIABETES MELLITUS
     Dosage: UNK, AS NEEDED
  8. LEVEMIR [Concomitant]
     Indication: TYPE 1 DIABETES MELLITUS
     Dosage: UNK, AS NEEDED
  9. LANTUS [Concomitant]
     Indication: TYPE 1 DIABETES MELLITUS
     Dosage: UNK, AS NEEDED
  10. CINNAMON [Concomitant]
     Indication: INSULIN RESISTANCE

REACTIONS (9)
  - INSULIN RESISTANCE [None]
  - LIVER DISORDER [None]
  - MALAISE [None]
  - BLINDNESS [None]
  - CATARACT [None]
  - BLOOD GLUCOSE INCREASED [None]
  - DRUG INEFFECTIVE [None]
  - POLLAKIURIA [None]
  - RETINAL HAEMORRHAGE [None]
